FAERS Safety Report 16344845 (Version 1)
Quarter: 2019Q2

REPORT INFORMATION
  Report Type: Spontaneous
  Country: CN (occurrence: CN)
  Receive Date: 20190522
  Receipt Date: 20190522
  Transmission Date: 20190711
  Serious: Yes (Hospitalization)
  Sender: FDA-Public Use
  Company Number: CN-BAXTER-2019BAX009862

PATIENT
  Age: 49 Year
  Sex: Female
  Weight: 61.3 kg

DRUGS (8)
  1. ENDOXAN [Suspect]
     Active Substance: CYCLOPHOSPHAMIDE
     Indication: BREAST CANCER FEMALE
     Dosage: DOSAGE FORM: INJECTION, ENDOXAN + NS, 1 TO 3RD CHEMOTHERAPY.
     Route: 041
  2. 0.9% SODIUM CHLORIDE INJECTION [Suspect]
     Active Substance: SODIUM CHLORIDE
     Indication: MEDICATION DILUTION
     Dosage: ENDOXAN + NS, 1 TO 3RD CHEMOTHERAPY.
     Route: 041
  3. 5% GLUCOSE  INJECTION [Suspect]
     Active Substance: DEXTROSE
     Dosage: LIPUSU + GS, 4TH CHEMOTHERAPY
     Route: 041
     Dates: start: 20190414, end: 20190414
  4. LIPUSU [Suspect]
     Active Substance: PACLITAXEL
     Indication: BREAST CANCER FEMALE
     Dosage: LIPUSU + GS, 1 TO 3RD CHEMOTHERAPY.
     Route: 041
  5. 5% GLUCOSE  INJECTION [Suspect]
     Active Substance: DEXTROSE
     Indication: MEDICATION DILUTION
     Dosage: LIPUSU + GS, 1 TO 3RD CHEMOTHERAPY.
     Route: 041
  6. LIPUSU [Suspect]
     Active Substance: PACLITAXEL
     Dosage: LIPUSU + GS, 4TH CHEMOTHERAPY
     Route: 041
     Dates: start: 20190414, end: 20190414
  7. 0.9% SODIUM CHLORIDE INJECTION [Suspect]
     Active Substance: SODIUM CHLORIDE
     Dosage: ENDOXAN + NS, 4TH CHEMOTHERAPY
     Route: 041
     Dates: start: 20190414, end: 20190414
  8. ENDOXAN [Suspect]
     Active Substance: CYCLOPHOSPHAMIDE
     Dosage: DOSAGE FORM: INJECTION, ENDOXAN + NS, 4TH CHEMOTHERAPY
     Route: 041
     Dates: start: 20190414, end: 20190414

REACTIONS (2)
  - Hepatic enzyme increased [Unknown]
  - Hepatic function abnormal [Unknown]

NARRATIVE: CASE EVENT DATE: 20190504
